FAERS Safety Report 9315854 (Version 1)
Quarter: 2013Q2

REPORT INFORMATION
  Report Type: Spontaneous
  Country: FR (occurrence: FR)
  Receive Date: 20130530
  Receipt Date: 20130530
  Transmission Date: 20140414
  Serious: Yes (Disabling)
  Sender: FDA-Public Use
  Company Number: FR-ROCHE-1229412

PATIENT
  Age: 66 Year
  Sex: Female

DRUGS (18)
  1. AVASTIN [Suspect]
     Indication: OVARIAN EPITHELIAL CANCER
     Dosage: 4 SESSIONS
     Route: 065
     Dates: start: 201206, end: 201212
  2. AVASTIN [Suspect]
     Route: 042
     Dates: end: 20130115
  3. AVASTIN [Suspect]
     Route: 042
     Dates: end: 20130218
  4. CAELYX [Suspect]
     Indication: OVARIAN EPITHELIAL CANCER
     Route: 045
     Dates: start: 20130115
  5. CAELYX [Suspect]
     Route: 065
     Dates: start: 20130218
  6. MONOCRIXO [Concomitant]
     Route: 065
  7. DAFALGAN [Concomitant]
     Route: 065
  8. MYOLASTAN [Concomitant]
     Route: 065
  9. LYSANXIA [Concomitant]
     Route: 065
  10. SOLUPRED (FRANCE) [Concomitant]
     Route: 065
  11. FUROSEMIDE [Concomitant]
     Route: 065
  12. EUPANTOL [Concomitant]
     Route: 065
  13. BECILAN [Concomitant]
     Route: 065
  14. ABUFENE [Concomitant]
     Route: 065
  15. INNOHEP [Concomitant]
  16. SYMBICORT [Concomitant]
     Dosage: 400/12 MCG
     Route: 065
  17. VENTOLINE [Concomitant]
     Route: 065
  18. TAXOL [Concomitant]
     Route: 065

REACTIONS (1)
  - Palmar-plantar erythrodysaesthesia syndrome [Recovered/Resolved]
